FAERS Safety Report 5510923-8 (Version None)
Quarter: 2007Q4

REPORT INFORMATION
  Report Type: 
  Country: None (occurrence: None)
  Receive Date: 20071106
  Receipt Date: 20071106
  Transmission Date: 20080405
  Serious: Yes (Hospitalization)
  Sender: FDA-Public Use
  Company Number: None

PATIENT
  Age: 77 Year
  Sex: Male

DRUGS (5)
  1. AZITHROMYCIN [Suspect]
     Dosage: 250 MG/ DAY 1, 500 MG/DAYS 2-5 DAILY PO
     Route: 048
     Dates: start: 20071008, end: 20071010
  2. SIMVASTATIN [Concomitant]
  3. METOPROLOL TARTRATE [Concomitant]
  4. CHERATUSSIN [Concomitant]
  5. WARFARIN SODIUM [Concomitant]

REACTIONS (4)
  - DIARRHOEA [None]
  - FALL [None]
  - PNEUMONIA [None]
  - VOMITING [None]
